FAERS Safety Report 24413560 (Version 1)
Quarter: 2024Q4

REPORT INFORMATION
  Report Type: Spontaneous
  Country: SI (occurrence: SI)
  Receive Date: 20241008
  Receipt Date: 20241008
  Transmission Date: 20250114
  Serious: Yes (Other)
  Sender: NOVARTIS
  Company Number: SI-002147023-NVSC2024SI195676

PATIENT
  Age: 47 Year
  Sex: Male

DRUGS (1)
  1. MAYZENT [Suspect]
     Active Substance: SIPONIMOD
     Indication: Secondary progressive multiple sclerosis
     Dosage: UNK
     Route: 065
     Dates: start: 2021

REACTIONS (11)
  - Muscular weakness [Unknown]
  - Visual acuity reduced [Unknown]
  - Walking disability [Unknown]
  - Gait disturbance [Unknown]
  - Paresis [Unknown]
  - Ataxia [Unknown]
  - Somnolence [Unknown]
  - Dysphagia [Unknown]
  - Dysarthria [Unknown]
  - Quadriparesis [Unknown]
  - Lymphopenia [Unknown]
